FAERS Safety Report 18705240 (Version 1)
Quarter: 2021Q1

REPORT INFORMATION
  Report Type: Report from Study
  Country: BR (occurrence: BR)
  Receive Date: 20210106
  Receipt Date: 20210106
  Transmission Date: 20210419
  Serious: Yes (Other)
  Sender: FDA-Public Use
  Company Number: BR-UCBSA-2021000129

PATIENT
  Age: 70 Year
  Sex: Female
  Weight: 65 kg

DRUGS (2)
  1. CERTOLIZUMAB PEGOL RA [Suspect]
     Active Substance: CERTOLIZUMAB PEGOL
     Indication: RHEUMATOID ARTHRITIS
     Dosage: UNK
     Route: 058
     Dates: start: 2016, end: 202012
  2. AMITRIPTYLINE [Concomitant]
     Active Substance: AMITRIPTYLINE
     Indication: NEUROPATHY PERIPHERAL
     Dosage: 50 MILLIGRAM, ONCE DAILY (QD)
     Route: 048
     Dates: start: 2005

REACTIONS (1)
  - COVID-19 [Not Recovered/Not Resolved]

NARRATIVE: CASE EVENT DATE: 20201218
